FAERS Safety Report 8174804-6 (Version None)
Quarter: 2012Q1

REPORT INFORMATION
  Report Type: 
  Country: None (occurrence: None)
  Receive Date: 20120229
  Receipt Date: 20120216
  Transmission Date: 20120608
  Serious: Yes (Other)
  Sender: FDA-Public Use
  Company Number: PHEH2012US003253

PATIENT
  Sex: Female
  Weight: 65.6 kg

DRUGS (9)
  1. GLEEVEC [Suspect]
     Dosage: 200 MG, DAILY
     Route: 048
     Dates: start: 20111001
  2. TASIGNA [Suspect]
     Dosage: 200 MG, BID
  3. GLEEVEC [Suspect]
     Dosage: 100 MG, DAILY
     Route: 048
  4. HYDREA [Concomitant]
     Dosage: 500 MG, UNK
  5. GLEEVEC [Suspect]
     Dosage: 200 MG, DAILY
     Route: 048
     Dates: end: 20100601
  6. HYDREA [Concomitant]
     Dosage: 500 MG, UNK
  7. GLEEVEC [Suspect]
     Dosage: 200 MG, DAILY
     Route: 048
     Dates: start: 20080301
  8. GLEEVEC [Suspect]
     Indication: CHRONIC MYELOID LEUKAEMIA
     Dosage: 300 MG, DAILY
     Route: 048
     Dates: start: 20070827
  9. GLEEVEC [Suspect]
     Dosage: 300 MG, DAILY
     Dates: start: 20100901

REACTIONS (26)
  - SKIN TOXICITY [None]
  - NAUSEA [None]
  - HYPOPHAGIA [None]
  - RETCHING [None]
  - TREMOR [None]
  - VOMITING [None]
  - BLOOD GLUCOSE INCREASED [None]
  - HAEMOGLOBIN DECREASED [None]
  - RED BLOOD CELL COUNT DECREASED [None]
  - BLOOD UREA INCREASED [None]
  - MALAISE [None]
  - GLOMERULAR FILTRATION RATE DECREASED [None]
  - ABDOMINAL DISCOMFORT [None]
  - TOXICITY TO VARIOUS AGENTS [None]
  - GASTROINTESTINAL HAEMORRHAGE [None]
  - WEIGHT DECREASED [None]
  - EYE IRRITATION [None]
  - BLOOD CHLORIDE DECREASED [None]
  - GASTRITIS [None]
  - FATIGUE [None]
  - PLATELET COUNT INCREASED [None]
  - HYPONATRAEMIA [None]
  - ELECTROLYTE IMBALANCE [None]
  - ANAEMIA [None]
  - NEUTROPHIL COUNT INCREASED [None]
  - BLOOD CREATININE INCREASED [None]
